FAERS Safety Report 18646587 (Version 3)
Quarter: 2021Q3

REPORT INFORMATION
  Report Type: Other
  Country: US (occurrence: US)
  Receive Date: 20201221
  Receipt Date: 20210921
  Transmission Date: 20211014
  Serious: No
  Sender: FDA-Public Use
  Company Number: US-ACORDA-ACO_166558_2020

PATIENT
  Sex: Male

DRUGS (3)
  1. INBRIJA [Suspect]
     Active Substance: LEVODOPA
     Indication: PARKINSON^S DISEASE
     Dosage: 84 MILLIGRAM, PRN, NOT TO EXCEED 5 DOSES A DAY
     Dates: start: 20201013
  2. INBRIJA [Suspect]
     Active Substance: LEVODOPA
     Indication: ON AND OFF PHENOMENON
  3. CARBIDOPA/LEVODOPA [Concomitant]
     Active Substance: CARBIDOPA\LEVODOPA
     Indication: PRODUCT USED FOR UNKNOWN INDICATION
     Dosage: UNK
     Route: 065

REACTIONS (9)
  - Cough [Recovering/Resolving]
  - On and off phenomenon [Not Recovered/Not Resolved]
  - Therapeutic product effect variable [Recovering/Resolving]
  - Device occlusion [Recovering/Resolving]
  - Device use issue [Recovering/Resolving]
  - Product packaging difficult to open [Unknown]
  - Condition aggravated [Not Recovered/Not Resolved]
  - Device ineffective [Recovering/Resolving]
  - Prescribed underdose [Unknown]
